FAERS Safety Report 11723214 (Version 1)
Quarter: 2015Q4

REPORT INFORMATION
  Report Type: Spontaneous
  Country: US (occurrence: None)
  Receive Date: 20151110
  Receipt Date: 20151110
  Transmission Date: 20160304
  Serious: Yes (Other)
  Sender: FDA-Public Use
  Company Number: None

PATIENT
  Age: 69 Year
  Sex: Female
  Weight: 49.9 kg

DRUGS (8)
  1. VIT B [Concomitant]
     Active Substance: VITAMINS
  2. ZOLPIDEM TARTRATE 10MG [Suspect]
     Active Substance: ZOLPIDEM TARTRATE
     Indication: INSOMNIA
     Dosage: 1 PILL/NOC AT BEDTIME ON EMPTY STOMACH
     Route: 048
     Dates: start: 20150116, end: 201503
  3. TRAMADOL. [Concomitant]
     Active Substance: TRAMADOL
  4. LEFLUNOMIDE. [Concomitant]
     Active Substance: LEFLUNOMIDE
  5. MSM [Concomitant]
     Active Substance: DIMETHYL SULFONE
  6. LISINOPRIL. [Concomitant]
     Active Substance: LISINOPRIL
  7. ALPRAZOLAM. [Concomitant]
     Active Substance: ALPRAZOLAM
  8. VITAMIN D [Concomitant]
     Active Substance: CHOLECALCIFEROL

REACTIONS (6)
  - Fatigue [None]
  - Irritability [None]
  - Product quality issue [None]
  - Hypertension [None]
  - Pain [None]
  - Drug ineffective [None]

NARRATIVE: CASE EVENT DATE: 20150117
